FAERS Safety Report 23479845 (Version 1)
Quarter: 2024Q1

REPORT INFORMATION
  Report Type: Spontaneous
  Country: US (occurrence: US)
  Receive Date: 20240205
  Receipt Date: 20240205
  Transmission Date: 20240409
  Serious: No
  Sender: FDA-Public Use
  Company Number: US-UCBSA-2023037710

PATIENT
  Age: 64 Year
  Sex: Male
  Weight: 99.9 kg

DRUGS (1)
  1. KEPPRA [Suspect]
     Active Substance: LEVETIRACETAM
     Indication: Seizure
     Dosage: 500 MG IN THE MORNING (AM) AND 1000 MG AT NIGHT (PM)
     Dates: start: 202208

REACTIONS (8)
  - Vertigo [Unknown]
  - Irritability [Unknown]
  - Personality change [Unknown]
  - Mood altered [Unknown]
  - Memory impairment [Unknown]
  - Vision blurred [Unknown]
  - Diplopia [Unknown]
  - Treatment failure [Unknown]

NARRATIVE: CASE EVENT DATE: 20230601
